FAERS Safety Report 9045777 (Version 1)
Quarter: 2013Q1

REPORT INFORMATION
  Report Type: Report from Study
  Country: US (occurrence: US)
  Receive Date: 20130201
  Receipt Date: 20130201
  Transmission Date: 20140127
  Serious: No
  Sender: FDA-Public Use
  Company Number: US-ABBOTT-12P-163-1017222-00

PATIENT
  Age: 58 Year
  Sex: Female

DRUGS (9)
  1. HUMIRA [Suspect]
     Indication: PSORIASIS
     Dosage: STARTER DOSE
     Dates: start: 20111223
  2. HUMIRA [Suspect]
     Dosage: STARTER DOSE
  3. HUMIRA [Suspect]
  4. HYDROCHLOROTHIAZIDE [Concomitant]
     Indication: HYPERTENSION
  5. SIMVASTATIN [Concomitant]
     Indication: BLOOD CHOLESTEROL INCREASED
  6. ASA [Concomitant]
     Indication: PRODUCT USED FOR UNKNOWN INDICATION
     Dosage: 325 MG DAILY
  7. MULTIVITAMIN [Concomitant]
     Indication: PRODUCT USED FOR UNKNOWN INDICATION
  8. RED YEAST RICE EXTRACT [Concomitant]
     Indication: PROPHYLAXIS
     Dosage: 600 MG DAILY
  9. BENADRYL ALLERGY [Concomitant]
     Indication: HYPERSENSITIVITY
     Dosage: 25 MG, ONE DAILY, AS REQUIRED

REACTIONS (1)
  - Injection site pain [Recovered/Resolved]
